FAERS Safety Report 25944362 (Version 1)
Quarter: 2025Q4

REPORT INFORMATION
  Report Type: Spontaneous
  Country: US (occurrence: None)
  Receive Date: 20251020
  Receipt Date: 20251020
  Transmission Date: 20260117
  Serious: Yes (Other)
  Sender: FDA-CTU
  Company Number: None

PATIENT
  Age: 41 Year
  Sex: Female
  Weight: 54.43 kg

DRUGS (1)
  1. HYDROQUINONE [Suspect]
     Active Substance: HYDROQUINONE
     Indication: Chloasma
     Dosage: OTHER STRENGTH : 8%;?FREQUENCY : TWICE A DAY;?
     Dates: start: 20250704, end: 20250708

REACTIONS (6)
  - Product advertising issue [None]
  - Product use in unapproved indication [None]
  - Drug monitoring procedure not performed [None]
  - Application site burn [None]
  - Application site discolouration [None]
  - Application site wound [None]

NARRATIVE: CASE EVENT DATE: 20250708
